FAERS Safety Report 23052619 (Version 1)
Quarter: 2023Q4

REPORT INFORMATION
  Report Type: Spontaneous
  Country: US (occurrence: US)
  Receive Date: 20231011
  Receipt Date: 20231011
  Transmission Date: 20240109
  Serious: Yes (Other)
  Sender: FDA-Public Use
  Company Number: US-SPECGX-T202301890

PATIENT
  Age: 56 Year
  Sex: Female
  Weight: 63 kg

DRUGS (4)
  1. ACETAMINOPHEN\HYDROCODONE [Suspect]
     Active Substance: ACETAMINOPHEN\HYDROCODONE
     Indication: Spinal pain
     Dosage: 1 DOSAGE FORM, Q6H
     Route: 048
  2. ACETAMINOPHEN\HYDROCODONE [Suspect]
     Active Substance: ACETAMINOPHEN\HYDROCODONE
     Indication: Back pain
     Dosage: 1 DOSAGE FORM, Q6H
     Route: 048
     Dates: start: 20230823, end: 20230824
  3. IBUPROFEN [Concomitant]
     Active Substance: IBUPROFEN
     Indication: Antiinflammatory therapy
     Dosage: 800 MILLIGRAM, QD
     Route: 065
  4. TRAMADOL [Concomitant]
     Active Substance: TRAMADOL\TRAMADOL HYDROCHLORIDE
     Indication: Arthralgia
     Dosage: UNK
     Route: 065

REACTIONS (2)
  - Hypertension [Unknown]
  - Migraine [Recovered/Resolved]

NARRATIVE: CASE EVENT DATE: 20230801
